APPROVED DRUG PRODUCT: LEVETIRACETAM
Active Ingredient: LEVETIRACETAM
Strength: 500MG
Dosage Form/Route: TABLET, EXTENDED RELEASE;ORAL
Application: A091360 | Product #001
Applicant: PH HEALTH LTD
Approved: Oct 4, 2011 | RLD: No | RS: No | Type: DISCN